FAERS Safety Report 22659276 (Version 1)
Quarter: 2023Q2

REPORT INFORMATION
  Report Type: Spontaneous
  Country: US (occurrence: US)
  Receive Date: 20230630
  Receipt Date: 20230630
  Transmission Date: 20230722
  Serious: No
  Sender: FDA-Public Use
  Company Number: US-BRISTOL-MYERS SQUIBB COMPANY-2023-091317

PATIENT
  Age: 78 Year
  Sex: Female

DRUGS (1)
  1. LENALIDOMIDE [Suspect]
     Active Substance: LENALIDOMIDE
     Indication: Intraductal proliferative breast lesion
     Dosage: FREQUENCY: DAILY FOR 21 DAYS, THEN 7 DAYS OFF MEDICATION
     Route: 048

REACTIONS (2)
  - Balance disorder [Not Recovered/Not Resolved]
  - Off label use [Unknown]
